FAERS Safety Report 22587202 (Version 1)
Quarter: 2023Q2

REPORT INFORMATION
  Report Type: Report from Study
  Country: US (occurrence: US)
  Receive Date: 20230612
  Receipt Date: 20230612
  Transmission Date: 20230721
  Serious: Yes (Hospitalization)
  Sender: FDA-Public Use
  Company Number: US-ABBVIE-5283634

PATIENT
  Age: 64 Year
  Sex: Male

DRUGS (1)
  1. RINVOQ [Suspect]
     Active Substance: UPADACITINIB
     Indication: Psoriatic arthropathy
     Dosage: FORM STRENGTH: 15 MILLIGRAM
     Route: 048
     Dates: start: 20221227

REACTIONS (5)
  - Fall [Unknown]
  - Muscle rupture [Unknown]
  - Pruritus [Unknown]
  - Psoriatic arthropathy [Unknown]
  - Renal impairment [Unknown]

NARRATIVE: CASE EVENT DATE: 20230506
